FAERS Safety Report 6085629-X (Version None)
Quarter: 2009Q1

REPORT INFORMATION
  Report Type: 
  Country: None (occurrence: None)
  Receive Date: 20090217
  Receipt Date: 20090217
  Transmission Date: 20090719
  Serious: Yes (Other)
  Sender: FDA-Public Use
  Company Number: None

PATIENT
  Age: 57 Year
  Sex: Male
  Weight: 89.3586 kg

DRUGS (3)
  1. FLOMAX [Suspect]
     Indication: DYSURIA
     Dosage: 2 CAPSULES DAILY PO
     Route: 048
  2. FLOMAX [Suspect]
     Indication: PROSTATIC DISORDER
     Dosage: 2 CAPSULES DAILY PO
     Route: 048
  3. AVODART [Concomitant]

REACTIONS (4)
  - DRUG INEFFECTIVE [None]
  - DYSURIA [None]
  - PRODUCT COUNTERFEIT [None]
  - PRODUCT QUALITY ISSUE [None]
